FAERS Safety Report 9695915 (Version 3)
Quarter: 2014Q1

REPORT INFORMATION
  Report Type: Report from Study
  Country: US (occurrence: US)
  Receive Date: 20131119
  Receipt Date: 20140124
  Transmission Date: 20141002
  Serious: Yes (Hospitalization)
  Sender: FDA-Public Use
  Company Number: US-ACTELION-A-NJ2013-91009

PATIENT
  Age: 8 Month
  Sex: Female

DRUGS (2)
  1. TRACLEER [Suspect]
     Indication: PULMONARY ARTERIAL HYPERTENSION
     Dosage: 12 MG, BID
     Route: 048
     Dates: start: 20131107
  2. SILDENAFIL [Concomitant]

REACTIONS (2)
  - Respiratory syncytial virus infection [Recovering/Resolving]
  - Pyrexia [Recovering/Resolving]
